FAERS Safety Report 5730634-3 (Version None)
Quarter: 2008Q2

REPORT INFORMATION
  Report Type: 
  Country: None (occurrence: None)
  Receive Date: 20080505
  Receipt Date: 20080505
  Transmission Date: 20081010
  Serious: No
  Sender: FDA-Public Use
  Company Number: None

PATIENT
  Sex: Male
  Weight: 17.2367 kg

DRUGS (2)
  1. SINGULAIR [Suspect]
     Indication: ASTHMA
     Dosage: 4MG DAILY PO
     Route: 048
     Dates: start: 20080108, end: 20080505
  2. SINGULAIR [Suspect]
     Indication: ECZEMA
     Dosage: 4MG DAILY PO
     Route: 048
     Dates: start: 20080108, end: 20080505

REACTIONS (3)
  - AGGRESSION [None]
  - CRYING [None]
  - MOOD SWINGS [None]
